FAERS Safety Report 9807607 (Version 1)
Quarter: 2014Q1

REPORT INFORMATION
  Report Type: Spontaneous
  Country: US (occurrence: US)
  Receive Date: 20140110
  Receipt Date: 20140110
  Transmission Date: 20141002
  Serious: No
  Sender: FDA-Public Use
  Company Number: US-SANOFI-AVENTIS-2013SA056239

PATIENT
  Sex: Male

DRUGS (2)
  1. PLAVIX [Suspect]
     Dosage: HE^S BEEN ON PLAVIX FOR 9 DAYS
  2. ASPIRIN [Concomitant]

REACTIONS (3)
  - Hypertension [Not Recovered/Not Resolved]
  - Headache [Not Recovered/Not Resolved]
  - Wrong technique in drug usage process [Unknown]
